FAERS Safety Report 5705603-X (Version None)
Quarter: 2008Q2

REPORT INFORMATION
  Report Type: 
  Country: None (occurrence: None)
  Receive Date: 20080411
  Receipt Date: 20080404
  Transmission Date: 20081010
  Serious: Yes (Other)
  Sender: FDA-Public Use
  Company Number: 2008SP006617

PATIENT
  Age: 42 Year
  Sex: Female
  Weight: 70 kg

DRUGS (12)
  1. TEMODAL [Suspect]
     Indication: ANAPLASTIC ASTROCYTOMA
     Dosage: SEE IMAGE
     Route: 048
     Dates: start: 20061003, end: 20061007
  2. TEMODAL [Suspect]
     Indication: DISEASE RECURRENCE
     Dosage: SEE IMAGE
     Route: 048
     Dates: start: 20061003, end: 20061007
  3. TEMODAL [Suspect]
     Indication: ANAPLASTIC ASTROCYTOMA
     Dosage: SEE IMAGE
     Route: 048
     Dates: start: 20061031, end: 20061104
  4. TEMODAL [Suspect]
     Indication: DISEASE RECURRENCE
     Dosage: SEE IMAGE
     Route: 048
     Dates: start: 20061031, end: 20061104
  5. TEMODAL [Suspect]
     Indication: ANAPLASTIC ASTROCYTOMA
     Dosage: SEE IMAGE
     Route: 048
     Dates: start: 20061128, end: 20061202
  6. TEMODAL [Suspect]
     Indication: DISEASE RECURRENCE
     Dosage: SEE IMAGE
     Route: 048
     Dates: start: 20061128, end: 20061202
  7. TEMODAL [Suspect]
     Indication: ANAPLASTIC ASTROCYTOMA
     Dosage: SEE IMAGE
     Route: 048
     Dates: start: 20061226, end: 20061230
  8. TEMODAL [Suspect]
     Indication: DISEASE RECURRENCE
     Dosage: SEE IMAGE
     Route: 048
     Dates: start: 20061226, end: 20061230
  9. TEMODAL [Suspect]
     Indication: ANAPLASTIC ASTROCYTOMA
     Dosage: SEE IMAGE
     Route: 048
     Dates: start: 20070130, end: 20070203
  10. TEMODAL [Suspect]
     Indication: DISEASE RECURRENCE
     Dosage: SEE IMAGE
     Route: 048
     Dates: start: 20070130, end: 20070203
  11. TEMODAL [Suspect]
     Indication: ANAPLASTIC ASTROCYTOMA
     Dosage: SEE IMAGE
     Route: 048
     Dates: start: 20070227, end: 20070303
  12. TEMODAL [Suspect]
     Indication: DISEASE RECURRENCE
     Dosage: SEE IMAGE
     Route: 048
     Dates: start: 20070227, end: 20070303

REACTIONS (2)
  - HEPATIC STEATOSIS [None]
  - LIVER DISORDER [None]
